FAERS Safety Report 20828026 (Version 9)
Quarter: 2023Q1

REPORT INFORMATION
  Report Type: Spontaneous
  Country: US (occurrence: US)
  Receive Date: 20220513
  Receipt Date: 20230217
  Transmission Date: 20230418
  Serious: No
  Sender: FDA-Public Use
  Company Number: US-SA-SAC20220509000979

PATIENT
  Age: 63 Year
  Sex: Male

DRUGS (11)
  1. DUPIXENT [Suspect]
     Active Substance: DUPILUMAB
     Indication: Dermatitis atopic
     Dosage: 300 MG, QOW
     Route: 058
     Dates: start: 20220308
  2. DUPIXENT [Suspect]
     Active Substance: DUPILUMAB
     Indication: Dermatitis allergic
  3. TRIAD [Concomitant]
     Active Substance: ACETAMINOPHEN\BUTALBITAL\CAFFEINE
  4. ZINC [Concomitant]
     Active Substance: ZINC
  5. VITAMIN D3 [Concomitant]
     Active Substance: CHOLECALCIFEROL
  6. VITAMIN C [Concomitant]
     Active Substance: ASCORBIC ACID
  7. LISINOPRIL [Concomitant]
     Active Substance: LISINOPRIL
  8. SOOLANTRA [Concomitant]
     Active Substance: IVERMECTIN
  9. CLOBETASOL PROPIONATE [Concomitant]
     Active Substance: CLOBETASOL PROPIONATE
  10. CICLOPIROX [Concomitant]
     Active Substance: CICLOPIROX
  11. LUTEIN VISION PLUS [Concomitant]

REACTIONS (8)
  - Injection site pain [Unknown]
  - Condition aggravated [Unknown]
  - Weight decreased [Unknown]
  - Onychomycosis [Unknown]
  - Injection site bruising [Unknown]
  - Injection site swelling [Unknown]
  - Rash [Unknown]
  - Therapeutic product effect incomplete [Unknown]

NARRATIVE: CASE EVENT DATE: 20220101
